FAERS Safety Report 15173215 (Version 1)
Quarter: 2018Q3

REPORT INFORMATION
  Report Type: Spontaneous
  Country: None (occurrence: US)
  Receive Date: 20180720
  Receipt Date: 20180720
  Transmission Date: 20181010
  Serious: No
  Sender: FDA-Public Use
  Company Number: US-MERZ NORTH AMERICA, INC.-18MRZ-00365

PATIENT
  Sex: Female

DRUGS (1)
  1. XEOMIN [Suspect]
     Active Substance: INCOBOTULINUMTOXINA
     Indication: SKIN COSMETIC PROCEDURE
     Dosage: UNKNOWN

REACTIONS (9)
  - Swelling face [Recovering/Resolving]
  - Eyelid disorder [Unknown]
  - Feeling abnormal [Unknown]
  - Brow ptosis [Unknown]
  - Head discomfort [Unknown]
  - Pain [Unknown]
  - Paranasal sinus discomfort [Unknown]
  - Injection site mass [Recovering/Resolving]
  - General physical condition abnormal [Unknown]
